FAERS Safety Report 10215183 (Version 1)
Quarter: 2014Q2

REPORT INFORMATION
  Report Type: Spontaneous
  Country: CA (occurrence: CA)
  Receive Date: 20140603
  Receipt Date: 20140603
  Transmission Date: 20141212
  Serious: Yes (Other)
  Sender: FDA-Public Use
  Company Number: PHHY2014CA064548

PATIENT
  Age: 58 Year
  Sex: Male

DRUGS (4)
  1. IRBESARTAN SANDOZ [Suspect]
     Dosage: 300 MG, QD
     Route: 048
  2. APO ATORVASTATIN [Concomitant]
  3. APO HYDRO [Concomitant]
  4. FELODIPINE SANDOZ [Concomitant]

REACTIONS (2)
  - Psoriasis [Unknown]
  - Condition aggravated [Unknown]
